FAERS Safety Report 10182681 (Version 1)
Quarter: 2014Q2

REPORT INFORMATION
  Report Type: Spontaneous
  Country: US (occurrence: None)
  Receive Date: 20140516
  Receipt Date: 20140516
  Transmission Date: 20141212
  Serious: Yes (Hospitalization)
  Sender: FDA-Public Use
  Company Number: PI-10354

PATIENT
  Age: 54 Year
  Sex: Female

DRUGS (5)
  1. FLOLAN [Suspect]
     Indication: PULMONARY ARTERIAL HYPERTENSION
     Dosage: MG/KG/MIN
     Route: 042
     Dates: start: 20131204
  2. CHLORAPREP [Suspect]
     Indication: PREOPERATIVE CARE
     Route: 061
     Dates: start: 20131204
  3. CHLORAPREP [Suspect]
     Indication: INFECTION PROPHYLAXIS
     Route: 061
     Dates: start: 20131204
  4. AMBRISENTAN [Concomitant]
  5. FLOLAN [Concomitant]

REACTIONS (11)
  - Application site hypersensitivity [None]
  - Nasopharyngitis [None]
  - Epistaxis [None]
  - Anxiety [None]
  - Device infusion issue [None]
  - Swelling face [None]
  - Pain in jaw [None]
  - Salivary gland enlargement [None]
  - Application site reaction [None]
  - Dermatitis contact [None]
  - Device leakage [None]
